FAERS Safety Report 18519174 (Version 1)
Quarter: 2020Q4

REPORT INFORMATION
  Report Type: Report from Study
  Country: CR (occurrence: CR)
  Receive Date: 20201118
  Receipt Date: 20201118
  Transmission Date: 20210114
  Serious: Yes (Hospitalization, Other)
  Sender: FDA-Public Use
  Company Number: NVSC2020CR303338

PATIENT
  Age: 87 Year
  Sex: Male

DRUGS (2)
  1. VYMADA [Suspect]
     Active Substance: SACUBITRIL\VALSARTAN
     Indication: INFARCTION
     Dosage: 1 DF, UNKNOWN (1 OF 50 MG, STARTED 2MONTHS AGO APPROXIMATELY)
     Route: 065
  2. VYMADA [Suspect]
     Active Substance: SACUBITRIL\VALSARTAN
     Dosage: 2 DF, UNKNOWN, (2 OF 50 MG)
     Route: 065

REACTIONS (6)
  - Cardiac arrest [Unknown]
  - Underdose [Unknown]
  - Myocardial infarction [Unknown]
  - Inappropriate schedule of product administration [Unknown]
  - Senile dementia [Unknown]
  - Product use in unapproved indication [Unknown]
